FAERS Safety Report 18384709 (Version 2)
Quarter: 2021Q4

REPORT INFORMATION
  Report Type: Other
  Country: CA (occurrence: CA)
  Receive Date: 20201015
  Receipt Date: 20211124
  Transmission Date: 20220303
  Serious: Yes (Other)
  Sender: FDA-Public Use
  Company Number: CA-CELLTRION INC.-2020CA028678

PATIENT

DRUGS (10)
  1. RITUXIMAB [Suspect]
     Active Substance: RITUXIMAB
     Indication: Anti-interferon antibody positive
     Dosage: 580.0 MILLIGRAM 1 EVERY 4 WEEKS
     Route: 041
  2. RITUXIMAB [Suspect]
     Active Substance: RITUXIMAB
     Dosage: UNK
     Route: 042
  3. BENADRYL [Concomitant]
     Active Substance: DIPHENHYDRAMINE HYDROCHLORIDE
     Indication: Premedication
     Dosage: 50.0 MILLIGRAM
     Route: 048
  4. CLARITHROMYCIN [Concomitant]
     Active Substance: CLARITHROMYCIN
  5. LEVOTHYROXINE SODIUM [Concomitant]
     Active Substance: LEVOTHYROXINE SODIUM
     Route: 065
  6. LINEZOLID [Concomitant]
     Active Substance: LINEZOLID
  7. METHYLPREDNISOLONE SODIUM SUCCINATE [Concomitant]
     Active Substance: METHYLPREDNISOLONE SODIUM SUCCINATE
     Indication: Premedication
     Dosage: 100.0 MILLIGRAM
     Route: 042
  8. POTASSIUM [Concomitant]
     Active Substance: POTASSIUM
  9. TYLENOL [Concomitant]
     Active Substance: ACETAMINOPHEN
     Indication: Premedication
     Dosage: 650.0 MILLIGRAM
     Route: 048
  10. LYRICA [Concomitant]
     Active Substance: PREGABALIN
     Indication: Neuropathy peripheral

REACTIONS (4)
  - Ill-defined disorder [Unknown]
  - Mycobacterium avium complex infection [Unknown]
  - Off label use [Unknown]
  - Off label use [Unknown]
